FAERS Safety Report 22330116 (Version 1)
Quarter: 2023Q2

REPORT INFORMATION
  Report Type: Spontaneous
  Country: US (occurrence: None)
  Receive Date: 20230517
  Receipt Date: 20230517
  Transmission Date: 20230721
  Serious: No
  Sender: FDA-Public Use
  Company Number: US-ROCHE-3089355

PATIENT
  Age: 76 Year
  Sex: Female
  Weight: 81.72 kg

DRUGS (3)
  1. ACTEMRA [Suspect]
     Active Substance: TOCILIZUMAB
     Indication: Rheumatoid arthritis
     Dosage: EVERY FRIDAY ;ONGOING: UNKNOWN
     Route: 058
     Dates: start: 20220415
  2. ACTEMRA [Suspect]
     Active Substance: TOCILIZUMAB
  3. ENBREL [Concomitant]
     Active Substance: ETANERCEPT

REACTIONS (6)
  - Poor quality product administered [Unknown]
  - Product quality issue [Unknown]
  - Product administration error [Unknown]
  - Pruritus [Recovered/Resolved]
  - Accidental exposure to product [Unknown]
  - Device malfunction [Unknown]

NARRATIVE: CASE EVENT DATE: 20220429
